FAERS Safety Report 9522529 (Version 1)
Quarter: 2013Q1

REPORT INFORMATION
  Report Type: Spontaneous
  Country: US (occurrence: None)
  Receive Date: 20130305
  Receipt Date: 20130305
  Transmission Date: 20140127
  Serious: Yes (Hospitalization)
  Sender: FDA-Public Use
  Company Number: 163-21880-12032249

PATIENT
  Age: 91 Year
  Sex: Female
  Weight: 71.22 kg

DRUGS (13)
  1. REVLIMID [Suspect]
     Indication: LEUKAEMIA
     Dosage: 10 MG, QD X 21 DAYS, PO
     Route: 048
     Dates: start: 20120225
  2. SYNTHROID (LEVOTHYROXINE SODIUM) [Concomitant]
  3. ASA (ACETYLSALICYLIC ACID) [Concomitant]
  4. CALCIUM +D (OS-CAL) [Concomitant]
  5. CENTRUM SILVER (CENTRUM SILVER) [Concomitant]
  6. LASIX (FUROSEMIDE) [Concomitant]
  7. EYE VITE (EYEVITE) [Concomitant]
  8. NEXIUM [Concomitant]
  9. POTASSIUM (POTASSIUM) [Concomitant]
  10. OSTEO-BI FLEX (OSTEO BI-FLEX) [Concomitant]
  11. VITAMIN C [Concomitant]
  12. STOOL SOFTNER (DOCUSATE SODIUM) [Concomitant]
  13. ZYRTEC (CETIRIZINE HYDROCHLORIDE) [Concomitant]

REACTIONS (1)
  - Arthritis [None]
